FAERS Safety Report 24316661 (Version 1)
Quarter: 2024Q3

REPORT INFORMATION
  Report Type: Spontaneous
  Country: JP (occurrence: JP)
  Receive Date: 20240913
  Receipt Date: 20240913
  Transmission Date: 20241016
  Serious: Yes (Other)
  Sender: PFIZER
  Company Number: JP-PFIZER INC-PV202400119413

PATIENT

DRUGS (1)
  1. ELREXFIO [Suspect]
     Active Substance: ELRANATAMAB-BCMM
     Dosage: UNK
     Route: 058

REACTIONS (3)
  - Cytokine release syndrome [Recovered/Resolved]
  - Immunoglobulins decreased [Not Recovered/Not Resolved]
  - Liver disorder [Recovered/Resolved]
